FAERS Safety Report 5679735-9 (Version None)
Quarter: 2008Q1

REPORT INFORMATION
  Report Type: 
  Country: None (occurrence: None)
  Receive Date: 20080324
  Receipt Date: 20080319
  Transmission Date: 20080703
  Serious: Yes (Other)
  Sender: FDA-Public Use
  Company Number: CHPA2008US05066

PATIENT
  Sex: Male

DRUGS (1)
  1. BENEFIBER W/ WHEAT DEXTRIN (NCH)(WHEAT DEXTRIN) CAPLET [Suspect]
     Dosage: 9 CAPLETS IN A DAY, ORAL
     Route: 048
     Dates: start: 20080317

REACTIONS (1)
  - URINARY RETENTION [None]
